FAERS Safety Report 18757361 (Version 1)
Quarter: 2021Q1

REPORT INFORMATION
  Report Type: Spontaneous
  Country: NL (occurrence: NL)
  Receive Date: 20210119
  Receipt Date: 20210119
  Transmission Date: 20210419
  Serious: Yes (Other)
  Sender: FDA-Public Use
  Company Number: NL-TEVA-2021-NL-1870896

PATIENT
  Age: 59 Year
  Sex: Male
  Weight: 98 kg

DRUGS (7)
  1. TAMSULOSINE TABLET MGA 0,4MG / BRAND NAME NOT SPECIFIED [Suspect]
     Active Substance: TAMSULOSIN HYDROCHLORIDE
     Indication: BENIGN PROSTATIC HYPERPLASIA
     Dosage: .4 MILLIGRAM DAILY; THERAPY END DATE : ASKED BUT UNKNOWN
     Dates: start: 20200314
  2. BUDESONIDE/FORMOTEROL INHP  100/6UG/DO / SYMBICORT TURBUHALER INHALPDR [Concomitant]
     Dosage: 100/6 UG / DOSE (MICROGRAMS PER DOSE) , THERAPY START DATE AND END DATE : ASKED BUT UNKNOWN
  3. PARACETAMOL TABLET 1000MG / BRAND NAME NOT SPECIFIED [Concomitant]
     Dosage: 3 GRAM DAILY;  THERAPY START DATE AND END DATE : ASKED BUT UNKNOWN
  4. OMEPRAZOL CAPSULE MSR 10MG / MAAGZUURREMMER OMEPRAZOL CF CAPSULE MSR 1 [Concomitant]
     Dosage: 10 MG (MILLIGRAM) , THERAPY START DATE AND END DATE : ASKED BUT UNKNOWN
  5. ALPRAZOLAM TABLET MGA 0,5MG / XANAX RETARD TABLET MGA 0,5MG [Concomitant]
     Dosage: 0,5 MG (MILLIGRAM) , THERAPY START DATE AND END DATE : ASKED BUT UNKNOWN
  6. RUPATADINE TABLET 10MG / BRAND NAME NOT SPECIFIED [Concomitant]
     Dosage: 10 MILLIGRAM DAILY; THERAPY START DATE AND END DATE : ASKED BUT UNKNOWN
  7. ESCITALOPRAM TABLET 20MG / BRAND NAME NOT SPECIFIED [Concomitant]
     Dosage: 20 MG (MILLIGRAM) , THERAPY START DATE AND END DATE : ASKED BUT UNKNOWN

REACTIONS (4)
  - Therapeutic response unexpected [Unknown]
  - Syncope [Not Recovered/Not Resolved]
  - Headache [Not Recovered/Not Resolved]
  - Palpitations [Not Recovered/Not Resolved]

NARRATIVE: CASE EVENT DATE: 20200315
